FAERS Safety Report 9009112 (Version 1)
Quarter: 2013Q1

REPORT INFORMATION
  Report Type: Spontaneous
  Country: US (occurrence: US)
  Receive Date: 20130111
  Receipt Date: 20130111
  Transmission Date: 20140127
  Serious: No
  Sender: FDA-Public Use
  Company Number: US-GLAXOSMITHKLINE-A0997892A

PATIENT
  Age: 75 Year
  Sex: Male

DRUGS (1)
  1. JALYN [Suspect]
     Indication: PROSTATIC DISORDER
     Route: 048

REACTIONS (4)
  - Breast swelling [Recovered/Resolved]
  - Breast pain [Recovered/Resolved]
  - Libido decreased [Recovered/Resolved]
  - Rash [Recovered/Resolved]
